FAERS Safety Report 5265210-2 (Version None)
Quarter: 2007Q1

REPORT INFORMATION
  Report Type: 
  Country: None (occurrence: None)
  Receive Date: 20061121
  Receipt Date: 20061019
  Transmission Date: 20070707
  Serious: No
  Sender: FDA-Public Use
  Company Number: TPA2006A01830

PATIENT
  Age: 54 Year
  Sex: Male
  Weight: 87.5442 kg

DRUGS (4)
  1. ROZEREM [Suspect]
     Indication: INSOMNIA
     Dosage: PER ORAL
     Route: 048
  2. CELEBREX [Concomitant]
  3. PROTEIN SUPPLEMENTS (PROTEIN SUPPLEMENTS) [Concomitant]
  4. VICODIN [Concomitant]

REACTIONS (1)
  - DRUG INEFFECTIVE [None]
